FAERS Safety Report 9462141 (Version 1)
Quarter: 2013Q3

REPORT INFORMATION
  Report Type: Spontaneous
  Country: US (occurrence: None)
  Receive Date: 20130815
  Receipt Date: 20130815
  Transmission Date: 20140515
  Serious: Yes (Hospitalization)
  Sender: FDA-Public Use
  Company Number: None

PATIENT
  Age: 29 Year
  Sex: Female
  Weight: 76.3 kg

DRUGS (2)
  1. LANTUS [Suspect]
     Indication: TYPE 1 DIABETES MELLITUS
     Dosage: 22UNITS  QAM  SQ?CHRONIC
     Route: 058
  2. NOVOLOG [Suspect]
     Indication: TYPE 1 DIABETES MELLITUS
     Dosage: 10UNITS  WITH MEALS  SQ?CHRONIC
     Route: 058

REACTIONS (3)
  - Vomiting [None]
  - Diabetes mellitus inadequate control [None]
  - Blood glucose decreased [None]
